FAERS Safety Report 8405980-5 (Version None)
Quarter: 2012Q2

REPORT INFORMATION
  Report Type: 
  Country: None (occurrence: None)
  Receive Date: 20120604
  Receipt Date: 20120529
  Transmission Date: 20120825
  Serious: Yes (Other)
  Sender: FDA-Public Use
  Company Number: TR-US-EMD SERONO, INC.-7136237

PATIENT
  Sex: Female
  Weight: 54 kg

DRUGS (2)
  1. FLURBIPROFEN [Suspect]
     Indication: ANALGESIC THERAPY
     Route: 048
     Dates: start: 20080101
  2. REBIF [Suspect]
     Indication: RELAPSING-REMITTING MULTIPLE SCLEROSIS
     Route: 058
     Dates: start: 20110701

REACTIONS (3)
  - LOSS OF CONSCIOUSNESS [None]
  - MUSCLE CONTRACTIONS INVOLUNTARY [None]
  - FOAMING AT MOUTH [None]
